FAERS Safety Report 4971161-0 (Version None)
Quarter: 2006Q1

REPORT INFORMATION
  Report Type: 
  Country: None (occurrence: None)
  Receive Date: 20060222
  Receipt Date: 20050422
  Transmission Date: 20060701
  Serious: Yes (Hospitalization, Other)
  Sender: FDA-Public Use
  Company Number: HQWYE257725APR05

PATIENT
  Age: 63 Year
  Sex: Female

DRUGS (8)
  1. PROTONIX [Suspect]
     Dates: end: 20040101
  2. AMBIEN [Suspect]
  3. ATIVAN [Suspect]
     Dates: end: 20040101
  4. PLAVIX [Suspect]
     Dates: end: 20040101
  5. SINEQUAN [Suspect]
     Dates: end: 20040101
  6. THALOMID [Suspect]
     Indication: GAMMOPATHY
     Dosage: 200 MG 1X PER 1 DAY, ORAL
     Route: 048
     Dates: start: 20040730
  7. UNSPECIFIED ANTIHYPERTENSIVE AGENT (UNSPECIFIED ANTIHYPERTENSIVE AGENT [Suspect]
     Dates: end: 20040101
  8. XANAX [Suspect]
     Dates: end: 20040101

REACTIONS (4)
  - FATIGUE [None]
  - HYPOTENSION [None]
  - INSOMNIA [None]
  - LOSS OF CONSCIOUSNESS [None]
